FAERS Safety Report 5969718-3 (Version None)
Quarter: 2008Q4

REPORT INFORMATION
  Report Type: 
  Country: None (occurrence: None)
  Receive Date: 20081126
  Receipt Date: 20081120
  Transmission Date: 20090506
  Serious: Yes (Hospitalization)
  Sender: FDA-Public Use
  Company Number: US-GENENTECH-272175

PATIENT
  Sex: Female
  Weight: 81 kg

DRUGS (2)
  1. BEVACIZUMAB [Suspect]
     Indication: BREAST CANCER METASTATIC
     Dosage: 811 MG, Q2W
     Route: 042
     Dates: start: 20080620
  2. TAXOL [Concomitant]
     Indication: BREAST CANCER METASTATIC
     Dosage: 90 MG/M2, UNK
     Dates: start: 20080620

REACTIONS (1)
  - INFLAMMATION [None]
